APPROVED DRUG PRODUCT: CEFACLOR
Active Ingredient: CEFACLOR
Strength: EQ 250MG BASE
Dosage Form/Route: CAPSULE;ORAL
Application: A062205 | Product #001
Applicant: CEPH INTERNATIONAL CORP
Approved: Approved Prior to Jan 1, 1982 | RLD: No | RS: No | Type: DISCN